FAERS Safety Report 4660956-9 (Version None)
Quarter: 2005Q2

REPORT INFORMATION
  Report Type: 
  Country: None (occurrence: None)
  Receive Date: 20050511
  Receipt Date: 20050429
  Transmission Date: 20051028
  Serious: Yes (Other)
  Sender: FDA-Public Use
  Company Number: KII-2005-0016431

PATIENT
  Age: 20 Year
  Sex: Female

DRUGS (6)
  1. OXYCONTIN [Suspect]
  2. BENZODIAZEPINE DERIVATIVES [Suspect]
  3. COCAINE (COCAINE) [Suspect]
  4. CARISOPRODOL [Suspect]
  5. TETRAHYDROCANNABINOL (TETRAHYDROCANNABINOL) [Suspect]
  6. ASPIRIN [Suspect]

REACTIONS (9)
  - BLOOD PRESSURE DECREASED [None]
  - COMA [None]
  - DRUG SCREEN POSITIVE [None]
  - DYSARTHRIA [None]
  - HEART RATE INCREASED [None]
  - MUSCLE TWITCHING [None]
  - POLYSUBSTANCE ABUSE [None]
  - RESPIRATORY RATE DECREASED [None]
  - SOMNOLENCE [None]
